FAERS Safety Report 4702285-0 (Version None)
Quarter: 2005Q3

REPORT INFORMATION
  Report Type: 
  Country: None (occurrence: None)
  Receive Date: 20050614
  Receipt Date: 20050531
  Transmission Date: 20060218
  Serious: Yes (Other)
  Sender: FDA-Public Use
  Company Number: 200510283BCA

PATIENT
  Sex: Female

DRUGS (1)
  1. GAMUNEX [Suspect]
     Dosage: INTRAVENOUS
     Route: 042
     Dates: start: 20050523

REACTIONS (6)
  - COOMBS DIRECT TEST POSITIVE [None]
  - DISEASE RECURRENCE [None]
  - DYSPNOEA [None]
  - FATIGUE [None]
  - HAEMOLYTIC ANAEMIA [None]
  - NEOPLASM MALIGNANT [None]
